FAERS Safety Report 9258931 (Version 1)
Quarter: 2013Q2

REPORT INFORMATION
  Report Type: Spontaneous
  Country: JP (occurrence: JP)
  Receive Date: 20130426
  Receipt Date: 20130426
  Transmission Date: 20140414
  Serious: Yes (Other)
  Sender: FDA-Public Use
  Company Number: JP-GLAXOSMITHKLINE-B0885018A

PATIENT
  Sex: Male

DRUGS (3)
  1. PAXIL [Suspect]
     Indication: ANXIETY DISORDER
     Route: 048
     Dates: end: 2010
  2. PAXIL [Suspect]
     Indication: ANXIETY DISORDER
     Route: 048
     Dates: start: 2010, end: 2012
  3. PAXIL [Suspect]
     Indication: ANXIETY DISORDER
     Route: 048
     Dates: start: 2012

REACTIONS (5)
  - Atrial fibrillation [Not Recovered/Not Resolved]
  - Dyspnoea [Not Recovered/Not Resolved]
  - Nausea [Not Recovered/Not Resolved]
  - Irritability [Not Recovered/Not Resolved]
  - Memory impairment [Not Recovered/Not Resolved]
